FAERS Safety Report 26095042 (Version 1)
Quarter: 2025Q4

REPORT INFORMATION
  Report Type: Spontaneous
  Country: GB (occurrence: None)
  Receive Date: 20251127
  Receipt Date: 20251127
  Transmission Date: 20260118
  Serious: Yes (Hospitalization, Other)
  Sender: ORGANON
  Company Number: None

PATIENT
  Age: 85 Year
  Sex: Female

DRUGS (5)
  1. ALENDRONIC ACID [Suspect]
     Active Substance: ALENDRONIC ACID
     Dosage: ONE TO BE TAKEN ON THE SAME DAY EACH WEEK -HAS NOT BEEN TAKING FOR 3 WEEKS DUE TO DIARRHOEA/COLITIS. BEEN ON FOR FOUR YEARS - ?TX FAILURE. (CAN^T REMEMBER DAY OF WEEK SHE USUALY HAD IT - BUT DOES NOT WANT TO RESUME IT)
     Dates: start: 20250826
  2. PREDNISOLONE [Concomitant]
     Active Substance: PREDNISOLONE
     Dosage: ONE TO BE TAKEN EACH DAY
  3. ACETAMINOPHEN [Concomitant]
     Active Substance: ACETAMINOPHEN
     Dosage: TWO TO BE TAKEN EVERY 4-6 HOURS UP TO FOUR TIMES A DAY
  4. BISOPROLOL [Concomitant]
     Active Substance: BISOPROLOL
     Dosage: ONE TO BE TAKEN DAILY
  5. Fenbid 5% gel [Concomitant]
     Dosage: APPLY UP TO THREE TIMES A DAY WHEN REQUIRED
     Dates: start: 20250911

REACTIONS (4)
  - Atypical femur fracture [Unknown]
  - Colitis [Unknown]
  - Diarrhoea [Unknown]
  - Intentional dose omission [Unknown]

NARRATIVE: CASE EVENT DATE: 20251101
